FAERS Safety Report 8078402-4 (Version None)
Quarter: 2012Q1

REPORT INFORMATION
  Report Type: 
  Country: None (occurrence: None)
  Receive Date: 20120127
  Receipt Date: 20110307
  Transmission Date: 20120608
  Serious: No
  Sender: FDA-Public Use
  Company Number: US-ABBOTT-10P-163-0664413-00

PATIENT
  Sex: Male

DRUGS (7)
  1. MORPHINE [Concomitant]
     Indication: PAIN
  2. CYCLOBENZAPRINE [Concomitant]
     Indication: PRODUCT USED FOR UNKNOWN INDICATION
     Dosage: 10MG TID AS REQUIRED
     Route: 048
  3. HYDROCODONE [Concomitant]
     Indication: PAIN
     Dosage: 7.5/500MG EVERY 4 HOURS AS REQUIRED
  4. PROMETHAZINE [Concomitant]
     Indication: NAUSEA
     Dosage: 25MG QID AS REQUIRED
  5. HUMIRA [Suspect]
     Indication: CROHN'S DISEASE
     Dates: start: 20080801, end: 20100729
  6. HYOCYAMINE [Concomitant]
  7. HYOCYAMINE [Concomitant]
     Indication: MUSCLE SPASMS

REACTIONS (3)
  - JOINT SWELLING [None]
  - TUBERCULIN TEST POSITIVE [None]
  - ARTHRALGIA [None]
